FAERS Safety Report 9995100 (Version 3)
Quarter: 2014Q2

REPORT INFORMATION
  Report Type: Spontaneous
  Country: ES (occurrence: ES)
  Receive Date: 20140311
  Receipt Date: 20140506
  Transmission Date: 20141212
  Serious: No
  Sender: FDA-Public Use
  Company Number: ES-ELI_LILLY_AND_COMPANY-ES201403000087

PATIENT
  Sex: Female

DRUGS (1)
  1. ZYPREXA VELOTAB [Suspect]
     Indication: PSYCHOTIC DISORDER
     Dosage: 5 MG, UNKNOWN
     Route: 048

REACTIONS (3)
  - Coagulopathy [Unknown]
  - Erythema nodosum [Unknown]
  - Muscular weakness [Unknown]
